FAERS Safety Report 7986254-3 (Version None)
Quarter: 2011Q4

REPORT INFORMATION
  Report Type: 
  Country: None (occurrence: None)
  Receive Date: 20111216
  Receipt Date: 20110119
  Transmission Date: 20120403
  Serious: Yes (Other)
  Sender: FDA-Public Use
  Company Number: US-BRISTOL-MYERS SQUIBB COMPANY-15498447

PATIENT
  Age: 54 Year
  Sex: Female

DRUGS (4)
  1. METFORMIN HCL [Concomitant]
  2. PAXIL [Concomitant]
  3. ZONEGRAN [Concomitant]
  4. ABILIFY [Suspect]

REACTIONS (1)
  - DIABETES MELLITUS [None]
